FAERS Safety Report 9894783 (Version 1)
Quarter: 2014Q1

REPORT INFORMATION
  Report Type: Spontaneous
  Country: MX (occurrence: MX)
  Receive Date: 20140213
  Receipt Date: 20140213
  Transmission Date: 20141002
  Serious: No
  Sender: FDA-Public Use
  Company Number: MX-SA-2014SA012633

PATIENT
  Age: 28 Year
  Sex: Female
  Weight: 54 kg

DRUGS (3)
  1. ARAVA [Suspect]
     Indication: RHEUMATOID ARTHRITIS
     Dosage: MAINTENANCE DOSE
     Route: 048
     Dates: start: 2012, end: 20140120
  2. ARAVA [Suspect]
     Indication: RHEUMATOID ARTHRITIS
     Dosage: LOAD DOSE
     Route: 048
     Dates: start: 2012
  3. PREDNISONE [Suspect]
     Indication: RHEUMATOID ARTHRITIS
     Route: 048
     Dates: start: 2012, end: 20140120

REACTIONS (1)
  - Exposure during pregnancy [Unknown]
